FAERS Safety Report 9856566 (Version 2)
Quarter: 2014Q1

REPORT INFORMATION
  Report Type: Spontaneous
  Country: US (occurrence: US)
  Receive Date: 20140130
  Receipt Date: 20140130
  Transmission Date: 20141002
  Serious: No
  Sender: FDA-Public Use
  Company Number: US-GILEAD-2012-0063496

PATIENT
  Age: 31 Year
  Sex: Male
  Weight: 112.93 kg

DRUGS (3)
  1. COMPLERA [Suspect]
     Indication: HIV INFECTION
     Dosage: UNK
     Dates: start: 20120708
  2. AZITHROMYCIN [Concomitant]
     Indication: OPPORTUNISTIC INFECTION PROPHYLAXIS
     Dosage: 1200 MG, UNK
     Route: 048
     Dates: start: 20120612
  3. DAPSONE [Concomitant]
     Indication: ANTIFUNGAL PROPHYLAXIS
     Dosage: 100 MG, UNK
     Route: 048
     Dates: start: 20120620

REACTIONS (2)
  - Hunger [Not Recovered/Not Resolved]
  - Weight increased [Not Recovered/Not Resolved]
